FAERS Safety Report 7552858-5 (Version None)
Quarter: 2011Q2

REPORT INFORMATION
  Report Type: 
  Country: None (occurrence: None)
  Receive Date: 20110616
  Receipt Date: 20110613
  Transmission Date: 20111010
  Serious: Yes (Other)
  Sender: FDA-Public Use
  Company Number: US-PFIZER INC-2011069738

PATIENT
  Sex: Male

DRUGS (4)
  1. NEURONTIN [Suspect]
     Indication: BURNING SENSATION
     Dosage: UNK
  2. LIPITOR [Concomitant]
     Dosage: UNK
  3. LYRICA [Suspect]
     Dosage: UNK
  4. ACCUPRIL [Concomitant]
     Dosage: UNK

REACTIONS (4)
  - MEMORY IMPAIRMENT [None]
  - BURNING SENSATION [None]
  - DRUG INEFFECTIVE [None]
  - CEREBROVASCULAR ACCIDENT [None]
